FAERS Safety Report 23871345 (Version 2)
Quarter: 2024Q3

REPORT INFORMATION
  Report Type: Spontaneous
  Country: US (occurrence: US)
  Receive Date: 20240519
  Receipt Date: 20240703
  Transmission Date: 20241017
  Serious: No
  Sender: GLAXOSMITHKLINE
  Company Number: US-GSKCCFUS-Case-02006082_AE-111362

PATIENT
  Age: 70 Year
  Sex: Female

DRUGS (1)
  1. ARNUITY ELLIPTA [Suspect]
     Active Substance: FLUTICASONE FUROATE
     Indication: Product used for unknown indication
     Dosage: 100 MG, QD
     Route: 055

REACTIONS (2)
  - Dyspnoea exertional [Unknown]
  - Product complaint [Unknown]

NARRATIVE: CASE EVENT DATE: 20240508
